FAERS Safety Report 6540989-8 (Version None)
Quarter: 2010Q1

REPORT INFORMATION
  Report Type: 
  Country: None (occurrence: None)
  Receive Date: 20100118
  Receipt Date: 20100107
  Transmission Date: 20100710
  Serious: Yes (Other)
  Sender: FDA-Public Use
  Company Number: PHHY2010BR01033

PATIENT
  Sex: Female
  Weight: 62 kg

DRUGS (2)
  1. DIOVAN AMLO FIX [Suspect]
     Indication: HYPERTENSION
     Dosage: 1 TABLET IN THE MORNING AND AT NIGHT
     Route: 048
  2. METFORMIN HCL [Suspect]
     Indication: DIABETES MELLITUS
     Dosage: 3 TABLETS AT NIGHT

REACTIONS (2)
  - EYE OPERATION [None]
  - WEIGHT INCREASED [None]
